FAERS Safety Report 5625929-8 (Version None)
Quarter: 2008Q1

REPORT INFORMATION
  Report Type: 
  Country: None (occurrence: None)
  Receive Date: 20080211
  Receipt Date: 20080128
  Transmission Date: 20080703
  Serious: No
  Sender: FDA-Public Use
  Company Number: 8029632

PATIENT
  Sex: Male
  Weight: 28.2 kg

DRUGS (2)
  1. METHYLPHENIDATE HCL [Suspect]
     Dosage: 20 MG 1/D
     Dates: start: 20070120, end: 20070226
  2. CONCERTA [Concomitant]

REACTIONS (3)
  - ANXIETY [None]
  - HEADACHE [None]
  - TIC [None]
